FAERS Safety Report 21490900 (Version 1)
Quarter: 2022Q4

REPORT INFORMATION
  Report Type: Spontaneous
  Country: US (occurrence: None)
  Receive Date: 20221020
  Receipt Date: 20221020
  Transmission Date: 20230112
  Serious: No
  Sender: FDA-Public Use
  Company Number: None

PATIENT
  Age: 41 Year
  Sex: Female

DRUGS (1)
  1. HUMIRA [Suspect]
     Active Substance: ADALIMUMAB
     Indication: Rheumatoid arthritis
     Dosage: 40MG  EVERY 14 DAYS UNDER THE SKIN?
     Route: 058
     Dates: start: 202209

REACTIONS (4)
  - Device issue [None]
  - Device malfunction [None]
  - Device leakage [None]
  - Product dose omission issue [None]

NARRATIVE: CASE EVENT DATE: 20221019
